FAERS Safety Report 5811395-6 (Version None)
Quarter: 2008Q3

REPORT INFORMATION
  Report Type: 
  Country: None (occurrence: None)
  Receive Date: 20080714
  Receipt Date: 20080702
  Transmission Date: 20090109
  Serious: Yes (Other)
  Sender: FDA-Public Use
  Company Number: 2008017846

PATIENT

DRUGS (5)
  1. CETIRIZINE HCL [Suspect]
     Indication: RHINITIS ALLERGIC
  2. MEBHYDROLIN (MEBHYDROLIN) [Concomitant]
  3. ACETYLSALICYLIC ACID SRT [Concomitant]
  4. HEPARIN [Concomitant]
  5. AMOXICILLIN [Concomitant]

REACTIONS (4)
  - DRUG EXPOSURE DURING PREGNANCY [None]
  - MACROCEPHALY [None]
  - MACROSOMIA [None]
  - MATERNAL DRUGS AFFECTING FOETUS [None]
